FAERS Safety Report 12422984 (Version 1)
Quarter: 2016Q2

REPORT INFORMATION
  Report Type: Spontaneous
  Country: US (occurrence: None)
  Receive Date: 20160531
  Receipt Date: 20160531
  Transmission Date: 20160815
  Serious: No
  Sender: FDA-Public Use
  Company Number: None

PATIENT
  Age: 62 Year
  Sex: Female
  Weight: 78.93 kg

DRUGS (15)
  1. SERTRALINE [Concomitant]
     Active Substance: SERTRALINE HYDROCHLORIDE
  2. VITAMIN E [Concomitant]
     Active Substance: .ALPHA.-TOCOPHEROL
  3. L-LYSINE [Concomitant]
     Active Substance: LYSINE
  4. METROPOLOL [Concomitant]
     Active Substance: METOPROLOL
  5. 81MG ASPIRIN [Concomitant]
  6. VITAMIN D [Concomitant]
     Active Substance: CHOLECALCIFEROL
  7. PRAVASTATIN [Concomitant]
     Active Substance: PRAVASTATIN\PRAVASTATIN SODIUM
  8. BIOTIN [Concomitant]
     Active Substance: BIOTIN
  9. ENSTILAR [Suspect]
     Active Substance: BETAMETHASONE DIPROPIONATE\CALCIPOTRIENE HYDRATE
     Indication: PSORIASIS
     Dosage: 5 SPRAY (S) 2-3 TIMES/WEEK APPLIED TO A SURFACE, USUALLY THE SKIN
     Route: 061
     Dates: start: 20160318, end: 20160401
  10. FOLIC ACID. [Concomitant]
     Active Substance: FOLIC ACID
  11. FISH OIL [Concomitant]
     Active Substance: FISH OIL
  12. PANTAPROZOLE [Concomitant]
     Active Substance: PANTOPRAZOLE SODIUM
  13. VITAMIN B [Concomitant]
     Active Substance: VITAMIN B
  14. BENICAR HCT [Concomitant]
     Active Substance: HYDROCHLOROTHIAZIDE\OLMESARTAN MEDOXOMIL
  15. CALCIUM [Concomitant]
     Active Substance: CALCIUM

REACTIONS (3)
  - Application site erythema [None]
  - Application site pain [None]
  - Alopecia [None]

NARRATIVE: CASE EVENT DATE: 20160331
